FAERS Safety Report 5927316-1 (Version None)
Quarter: 2008Q4

REPORT INFORMATION
  Report Type: 
  Country: None (occurrence: None)
  Receive Date: 20081017
  Receipt Date: 20081003
  Transmission Date: 20090506
  Serious: Yes (Other)
  Sender: FDA-Public Use
  Company Number: 230016M08SWE

PATIENT
  Age: 37 Year
  Sex: Female

DRUGS (4)
  1. REBIF [Suspect]
     Indication: MULTIPLE SCLEROSIS
     Dosage: 44 MCG, SUBCUTANEOUS
     Route: 058
     Dates: start: 20080401, end: 20080829
  2. ESCITALOPRAM [Concomitant]
  3. CAMPRAL [Concomitant]
  4. IBUPROFEN TABLETS [Concomitant]

REACTIONS (2)
  - RETINAL INFARCTION [None]
  - RETINAL VEIN THROMBOSIS [None]
